FAERS Safety Report 12649355 (Version 1)
Quarter: 2016Q3

REPORT INFORMATION
  Report Type: Spontaneous
  Country: GR (occurrence: GR)
  Receive Date: 20160812
  Receipt Date: 20160812
  Transmission Date: 20161109
  Serious: Yes (Hospitalization, Other)
  Sender: FDA-Public Use
  Company Number: GR-MYLANLABS-2016M1032796

PATIENT

DRUGS (4)
  1. VANCOMYCIN MYLAN [Suspect]
     Active Substance: VANCOMYCIN
     Indication: SEPTIC SHOCK
     Dosage: 60 MG/KG PER DAY
     Route: 042
     Dates: start: 20160507, end: 20160512
  2. METRONIDAZOLE                      /00012502/ [Concomitant]
     Dosage: UNK
  3. MEROPENEM. [Concomitant]
     Active Substance: MEROPENEM
     Dosage: UNK
  4. AMIKACIN [Concomitant]
     Active Substance: AMIKACIN

REACTIONS (1)
  - Drug level below therapeutic [Unknown]

NARRATIVE: CASE EVENT DATE: 20160507
